FAERS Safety Report 6100163-6 (Version None)
Quarter: 2009Q1

REPORT INFORMATION
  Report Type: 
  Country: None (occurrence: None)
  Receive Date: 20090302
  Receipt Date: 20090302
  Transmission Date: 20090719
  Serious: No
  Sender: FDA-Public Use
  Company Number: None

PATIENT
  Age: 54 Year
  Sex: Female
  Weight: 70.3075 kg

DRUGS (3)
  1. ZICAM NASAL SPRAY MATRIXX [Suspect]
     Indication: NASAL CONGESTION
     Dosage: 1 TIME
     Dates: start: 20090215, end: 20090215
  2. ZICAM NASAL SPRAY MATRIXX [Suspect]
     Indication: NASOPHARYNGITIS
     Dosage: 1 TIME
     Dates: start: 20090215, end: 20090215
  3. ZICAM NASAL SPRAY MATRIXX [Suspect]
     Indication: SINUSITIS
     Dosage: 1 TIME
     Dates: start: 20090215, end: 20090215

REACTIONS (4)
  - NASAL CONGESTION [None]
  - NASAL DISCOMFORT [None]
  - PAROSMIA [None]
  - THROAT IRRITATION [None]
